FAERS Safety Report 7542776-0 (Version None)
Quarter: 2011Q2

REPORT INFORMATION
  Report Type: 
  Country: None (occurrence: None)
  Receive Date: 20110613
  Receipt Date: 20110601
  Transmission Date: 20111010
  Serious: Yes (Other)
  Sender: FDA-Public Use
  Company Number: B0724849A

PATIENT
  Age: 32 Year
  Sex: Female

DRUGS (2)
  1. MALARONE [Suspect]
     Indication: MALARIA PROPHYLAXIS
     Route: 065
  2. AUGMENTIN '125' [Suspect]
     Indication: BRONCHITIS
     Route: 065

REACTIONS (3)
  - MALARIA [None]
  - DRUG INEFFECTIVE [None]
  - DYSURIA [None]
